FAERS Safety Report 7769478-X (Version None)
Quarter: 2011Q3

REPORT INFORMATION
  Report Type: 
  Country: None (occurrence: None)
  Receive Date: 20110922
  Receipt Date: 20100804
  Transmission Date: 20111222
  Serious: No
  Sender: FDA-Public Use
  Company Number: US-ASTRAZENECA-2010SE29139

PATIENT
  Age: 47 Year
  Sex: Male
  Weight: 99.8 kg

DRUGS (3)
  1. LEXAPRO [Concomitant]
  2. PROPRANOLOL [Concomitant]
  3. SEROQUEL [Suspect]
     Indication: HALLUCINATION
     Route: 048
     Dates: start: 20030101

REACTIONS (4)
  - SCREAMING [None]
  - DRUG DOSE OMISSION [None]
  - IRRITABILITY [None]
  - DIABETES MELLITUS [None]
